FAERS Safety Report 5297756-5 (Version None)
Quarter: 2007Q2

REPORT INFORMATION
  Report Type: 
  Country: None (occurrence: None)
  Receive Date: 20070416
  Receipt Date: 20070403
  Transmission Date: 20071010
  Serious: Yes (Hospitalization)
  Sender: FDA-Public Use
  Company Number: FR-ELI_LILLY_AND_COMPANY-FR200611005374

PATIENT
  Age: 82 Year
  Sex: Female
  Weight: 58 kg

DRUGS (6)
  1. FORTEO [Suspect]
     Indication: OSTEOPOROTIC FRACTURE
     Dosage: 20 UG, DAILY (1/D)
     Route: 058
     Dates: start: 20050930
  2. LOXEN [Concomitant]
     Indication: HYPERTENSION
     Dosage: 50 MG, 2/D
     Route: 048
     Dates: start: 19901014
  3. TRIATEC [Concomitant]
     Indication: HYPERTENSION
     Dosage: 1 D/F, DAILY (1/D)
     Route: 048
     Dates: start: 19901014
  4. LEXOMIL [Concomitant]
     Dates: start: 19901014
  5. SECTRAL [Concomitant]
     Indication: HYPERTENSION
     Dosage: 0.5 D/F, 2/D
     Route: 048
     Dates: start: 19901014
  6. DEBRIDAT [Concomitant]
     Indication: GASTROINTESTINAL DISORDER
     Dosage: 1 D/F, 3/D
     Route: 048

REACTIONS (2)
  - MUSCLE SPASMS [None]
  - TRANSIENT ISCHAEMIC ATTACK [None]
